FAERS Safety Report 15003246 (Version 1)
Quarter: 2018Q2

REPORT INFORMATION
  Report Type: Spontaneous
  Country: FR (occurrence: FR)
  Receive Date: 20180613
  Receipt Date: 20180613
  Transmission Date: 20180711
  Serious: Yes (Death, Hospitalization)
  Sender: FDA-Public Use
  Company Number: FR-SUN PHARMACEUTICAL INDUSTRIES LTD-2018RR-175526

PATIENT

DRUGS (20)
  1. TIORFAN [Suspect]
     Active Substance: RACECADOTRIL
     Indication: DIARRHOEA
     Dosage: 200 MG, QID
     Route: 048
     Dates: start: 20170509
  2. SKENAN [Suspect]
     Active Substance: MORPHINE SULFATE
     Indication: PAIN
     Dosage: ()
     Route: 048
     Dates: start: 20170526
  3. INEXIUM 40 MG, COMPRIME GASTRO-RESISTANT [Suspect]
     Active Substance: ESOMEPRAZOLE MAGNESIUM
     Indication: STRESS ULCER
     Dosage: 40 MG, DAILY
     Route: 048
     Dates: start: 20170523
  4. SCOPODERM TTS 1 MG/72 HOURS, TRANSDERMAL PATCH (HYOSCINE) [Suspect]
     Active Substance: SCOPOLAMINE
     Indication: RALES
     Dosage: 1 DF, /72 HOURS
     Route: 062
     Dates: start: 20170519
  5. VANCOMYCINE [Suspect]
     Active Substance: VANCOMYCIN
     Indication: PRODUCT USED FOR UNKNOWN INDICATION
     Dosage: 1.5 G, DAILY
     Route: 042
     Dates: start: 20170503
  6. NICOPATCH [Suspect]
     Active Substance: NICOTINE
     Indication: EX-TOBACCO USER
     Dosage: 14 MG, DAILY
     Route: 062
     Dates: start: 20170410
  7. MORPHINE [Suspect]
     Active Substance: MORPHINE
     Indication: PAIN
     Dosage: 3 MG EN BOLUS TOUTES LES 4 HEURES ()
     Route: 042
     Dates: start: 20170526
  8. MIANSERINE [Suspect]
     Active Substance: MIANSERIN HYDROCHLORIDE
     Indication: DEPRESSION
     Dosage: 30 MG, DAILY
     Route: 048
     Dates: start: 20170407
  9. FOLINATE DE CALCIUM [Suspect]
     Active Substance: LEUCOVORIN CALCIUM
     Indication: PRODUCT USED FOR UNKNOWN INDICATION
     Dosage: 100 MG, DAILY
     Route: 042
     Dates: start: 201704
  10. VITAMIN K [Suspect]
     Active Substance: PHYTONADIONE
     Indication: PRODUCT USED FOR UNKNOWN INDICATION
     Dosage: 20 MG, 1/WEEK
     Route: 042
     Dates: start: 20170428
  11. PARACETAMOL [Suspect]
     Active Substance: ACETAMINOPHEN
     Indication: PAIN
     Dosage: 1 G, UNK
     Route: 048
     Dates: start: 20170509
  12. AMOXICILLINE [Suspect]
     Active Substance: AMOXICILLIN
     Indication: PRODUCT USED FOR UNKNOWN INDICATION
     Dosage: 3 G, DAILY
     Route: 048
     Dates: start: 20170526, end: 20170602
  13. LOPERAMIDE [Suspect]
     Active Substance: LOPERAMIDE
     Indication: DIARRHOEA
     Dosage: 6 MG, DAILY
     Route: 048
  14. HALDOL [Suspect]
     Active Substance: HALOPERIDOL
     Indication: ANXIETY
     Dosage: 3 MG, DAILY
     Route: 048
     Dates: start: 20170416
  15. SERESTA [Suspect]
     Active Substance: OXAZEPAM
     Indication: ANXIETY
     Dosage: 20 MG X 3 PAR JOUR + 50 MG LE SOIR ()
     Route: 048
     Dates: start: 20170420
  16. IMOVANE [Suspect]
     Active Substance: ZOPICLONE
     Indication: INSOMNIA
     Dosage: 7.5 MG, DAILY
     Route: 048
     Dates: start: 20170416
  17. SERTRALINE [Suspect]
     Active Substance: SERTRALINE HYDROCHLORIDE
     Indication: DEPRESSION
     Dosage: 50 MG, DAILY
     Route: 048
     Dates: start: 20170413
  18. INNOHEP [Suspect]
     Active Substance: TINZAPARIN SODIUM
     Indication: DEEP VEIN THROMBOSIS
     Dosage: 18000 IU, DAILY
     Route: 058
     Dates: start: 20170426
  19. TAZOCILLINE [Suspect]
     Active Substance: PIPERACILLIN SODIUM\TAZOBACTAM SODIUM
     Indication: LUNG DISORDER
     Dosage: NON RENSEIGNEE ()
     Route: 042
     Dates: start: 20170526, end: 20170526
  20. BRICANYL [Suspect]
     Active Substance: TERBUTALINE SULFATE
     Indication: PRODUCT USED FOR UNKNOWN INDICATION
     Dosage: NON RENSEIGNEE ()
     Route: 055
     Dates: start: 20170505

REACTIONS (5)
  - Transaminases increased [Not Recovered/Not Resolved]
  - Blood alkaline phosphatase increased [Not Recovered/Not Resolved]
  - Hepatocellular injury [Not Recovered/Not Resolved]
  - Gamma-glutamyltransferase increased [Not Recovered/Not Resolved]
  - Cholestasis [Not Recovered/Not Resolved]

NARRATIVE: CASE EVENT DATE: 20170526
